FAERS Safety Report 13780062 (Version 1)
Quarter: 2017Q3

REPORT INFORMATION
  Report Type: Spontaneous
  Country: US (occurrence: US)
  Receive Date: 20170724
  Receipt Date: 20170724
  Transmission Date: 20171127
  Serious: Yes (Hospitalization)
  Sender: FDA-Public Use
  Company Number: US-BEH-2017082175

PATIENT
  Sex: Male
  Weight: 72.56 kg

DRUGS (19)
  1. DUTASTERIDE. [Concomitant]
     Active Substance: DUTASTERIDE
  2. VALSARTAN HCTZ [Concomitant]
     Active Substance: HYDROCHLOROTHIAZIDE\VALSARTAN
  3. COUMADIN [Concomitant]
     Active Substance: WARFARIN SODIUM
  4. CALCIUM [Concomitant]
     Active Substance: CALCIUM
  5. HIZENTRA [Suspect]
     Active Substance: HUMAN IMMUNOGLOBULIN G
     Dosage: UNK
     Route: 058
  6. AMIODARONE [Concomitant]
     Active Substance: AMIODARONE
  7. ZOLEDRONIC ACID MONOHYDRATE [Concomitant]
     Active Substance: ZOLEDRONIC ACID
  8. ASPIRIN. [Concomitant]
     Active Substance: ASPIRIN
  9. METAMUCIL [Concomitant]
     Active Substance: PLANTAGO SEED
  10. EPIPEN [Concomitant]
     Active Substance: EPINEPHRINE
  11. FUROSEMIDE. [Concomitant]
     Active Substance: FUROSEMIDE
  12. VITAMIN B COMPLEX                  /00003501/ [Concomitant]
     Active Substance: CALCIUM PANTOTHENATE\NIACINAMIDE\PYRIDOXINE HYDROCHLORIDE\RIBOFLAVIN\THIAMINE HYDROCHLORIDE
  13. ARANESP [Concomitant]
     Active Substance: DARBEPOETIN ALFA
  14. DEXAMETHASONE. [Concomitant]
     Active Substance: DEXAMETHASONE
  15. HIZENTRA [Suspect]
     Active Substance: HUMAN IMMUNOGLOBULIN G
     Indication: PLASMA CELL MYELOMA
     Dosage: 10 G, QW
     Route: 058
     Dates: start: 20170109
  16. LMX                                /00033401/ [Concomitant]
  17. PANTOPRAZOLE [Concomitant]
     Active Substance: PANTOPRAZOLE
  18. TRAMADOL. [Concomitant]
     Active Substance: TRAMADOL
  19. DIPHENHYDRAMINE. [Concomitant]
     Active Substance: DIPHENHYDRAMINE

REACTIONS (1)
  - Cardiac disorder [Unknown]
